FAERS Safety Report 7496964-2 (Version None)
Quarter: 2011Q2

REPORT INFORMATION
  Report Type: 
  Country: None (occurrence: None)
  Receive Date: 20110516
  Receipt Date: 20110503
  Transmission Date: 20111010
  Serious: Yes (Hospitalization)
  Sender: FDA-Public Use
  Company Number: 2011MA004899

PATIENT
  Age: 45 Year
  Sex: Male

DRUGS (2)
  1. CARBAMAZEPINE [Suspect]
     Indication: HERPES ZOSTER
     Dosage: 200 MG; PO
     Route: 048
     Dates: start: 20071026, end: 20071105
  2. VALTREX [Concomitant]

REACTIONS (1)
  - ERYTHEMA MULTIFORME [None]
